FAERS Safety Report 8015450-4 (Version None)
Quarter: 2011Q4

REPORT INFORMATION
  Report Type: 
  Country: None (occurrence: None)
  Receive Date: 20111230
  Receipt Date: 20111219
  Transmission Date: 20120403
  Serious: Yes (Hospitalization, Other)
  Sender: FDA-Public Use
  Company Number: US-BAYER-2011-082974

PATIENT
  Age: 24 Year
  Sex: Female

DRUGS (7)
  1. ACYCLOVIR [Concomitant]
  2. PROZAC [Concomitant]
     Indication: ABNORMAL BEHAVIOUR
     Dosage: 20 MG, QD
     Route: 048
  3. YASMIN [Suspect]
     Indication: ACNE
     Dosage: UNK
     Dates: start: 20010101, end: 20030101
  4. SPIRONOLACTONE [Concomitant]
  5. CLARITHROMYCIN [Concomitant]
  6. ADDERALL 5 [Concomitant]
     Indication: ATTENTION DEFICIT/HYPERACTIVITY DISORDER
     Route: 048
  7. VITAMIN B-12 [Concomitant]

REACTIONS (5)
  - BILIARY DYSKINESIA [None]
  - ABDOMINAL PAIN UPPER [None]
  - CHOLECYSTITIS CHRONIC [None]
  - GALLBLADDER DISORDER [None]
  - ARTHRALGIA [None]
